FAERS Safety Report 17187945 (Version 1)
Quarter: 2019Q4

REPORT INFORMATION
  Report Type: Spontaneous
  Country: FR (occurrence: FR)
  Receive Date: 20191221
  Receipt Date: 20191221
  Transmission Date: 20200122
  Serious: Yes (Hospitalization)
  Sender: FDA-Public Use
  Company Number: FR-AUROBINDO-AUR-APL-2019-104743

PATIENT
  Age: 92 Year
  Sex: Male

DRUGS (1)
  1. MEROPENEM ARROW 1000 MG POWDER FOR SOLUTION FOR INJECION OR INFUSION [Suspect]
     Active Substance: MEROPENEM
     Indication: DEVICE RELATED INFECTION
     Dosage: 3 GRAM, ONCE A DAY
     Route: 042
     Dates: start: 20190709, end: 20190726

REACTIONS (3)
  - Erythema [Recovered/Resolved]
  - Eosinophilia [Recovered/Resolved]
  - Pyrexia [Recovered/Resolved]

NARRATIVE: CASE EVENT DATE: 20190724
